FAERS Safety Report 7974552-9 (Version None)
Quarter: 2011Q4

REPORT INFORMATION
  Report Type: 
  Country: None (occurrence: None)
  Receive Date: 20111213
  Receipt Date: 20111209
  Transmission Date: 20120403
  Serious: Yes (Death, Hospitalization)
  Sender: FDA-Public Use
  Company Number: DE-GENZYME-CLOF-1001872

PATIENT
  Sex: Female
  Weight: 52 kg

DRUGS (18)
  1. BUSULFAN [Suspect]
     Indication: ACUTE MYELOID LEUKAEMIA
     Dosage: 42 MG, QID
     Route: 042
     Dates: start: 20111024, end: 20111025
  2. CYCLOPHOSPHAMIDE [Suspect]
     Indication: ACUTE MYELOID LEUKAEMIA
     Dosage: 3120 MG, QD
     Route: 042
     Dates: start: 20111026, end: 20111027
  3. PREDNISOLONE [Concomitant]
     Indication: CROHN'S DISEASE
     Dosage: 10-40 MG QD
     Route: 048
  4. AMPHOTERICIN B [Concomitant]
     Indication: ANTIFUNGAL PROPHYLAXIS
     Dosage: 4 PIPETTES, QD
     Route: 048
     Dates: start: 20111013
  5. PALLADONE [Concomitant]
     Dosage: 8-12 MG, QD
     Route: 042
     Dates: start: 20110801
  6. LEVOFLOXACIN [Concomitant]
     Indication: ANTIBIOTIC PROPHYLAXIS
     Dosage: 500 MG, QD
     Route: 048
     Dates: start: 20111014
  7. CYCLOPHOSPHAMIDE [Suspect]
     Indication: BONE MARROW CONDITIONING REGIMEN
  8. MOVIPREP [Concomitant]
     Indication: CONSTIPATION
     Dosage: 1 BAG PRN
     Route: 048
     Dates: start: 20111013
  9. CYTARABINE [Suspect]
     Indication: ACUTE MYELOID LEUKAEMIA
     Dosage: 1570 MG, QDX5
     Route: 042
     Dates: start: 20111014, end: 20111018
  10. BUSULFAN [Suspect]
     Indication: BONE MARROW CONDITIONING REGIMEN
  11. EVOLTRA [Suspect]
     Indication: BONE MARROW CONDITIONING REGIMEN
  12. PALLADONE [Concomitant]
     Indication: PAIN
     Dosage: 8-12 MG QD
     Route: 048
     Dates: start: 20110801
  13. CASPOFUNGIN ACETATE [Concomitant]
     Indication: ANTI-INFECTIVE THERAPY
     Dosage: 70 MG, QD
     Route: 042
     Dates: start: 20111015
  14. EVOLTRA [Suspect]
     Indication: ACUTE MYELOID LEUKAEMIA
     Dosage: 47 MG, QDX5
     Route: 042
     Dates: start: 20111014, end: 20111018
  15. CYTARABINE [Suspect]
     Indication: BONE MARROW CONDITIONING REGIMEN
  16. LAMIVUDINE [Concomitant]
     Indication: ANTIVIRAL PROPHYLAXIS
     Dosage: 100 MG, QD
     Route: 048
     Dates: start: 20111014
  17. CASPOFUNGIN ACETATE [Concomitant]
     Dosage: 50 MG, QD
     Route: 042
     Dates: start: 20111016
  18. PANTOPRAZOLE SODIUM [Concomitant]
     Indication: PROPHYLAXIS
     Dosage: 40-80 MG
     Route: 048

REACTIONS (6)
  - MULTI-ORGAN FAILURE [None]
  - HYPOTENSION [None]
  - TUMOUR LYSIS SYNDROME [None]
  - CAPILLARY LEAK SYNDROME [None]
  - BLOOD LACTATE DEHYDROGENASE INCREASED [None]
  - ACUTE MYELOID LEUKAEMIA [None]
